FAERS Safety Report 12992951 (Version 4)
Quarter: 2017Q2

REPORT INFORMATION
  Report Type: Report from Study
  Country: US (occurrence: US)
  Receive Date: 20161202
  Receipt Date: 20170501
  Transmission Date: 20170830
  Serious: Yes (Other)
  Sender: FDA-Public Use
  Company Number: US-ACTELION-A-NJ2016-146273

PATIENT
  Age: 76 Year
  Sex: Male
  Weight: 108.84 kg

DRUGS (3)
  1. OPSUMIT [Suspect]
     Active Substance: MACITENTAN
     Indication: PULMONARY HYPERTENSION
     Dosage: 10 MG, QD
     Route: 048
     Dates: start: 20160728
  2. XARELTO [Concomitant]
     Active Substance: RIVAROXABAN
  3. ADEMPAS [Concomitant]
     Active Substance: RIOCIGUAT

REACTIONS (9)
  - Diarrhoea [Unknown]
  - Abnormal loss of weight [Unknown]
  - Fatigue [Unknown]
  - Plasma cell myeloma [Unknown]
  - Peripheral swelling [Unknown]
  - Dyspnoea [Not Recovered/Not Resolved]
  - Joint swelling [Unknown]
  - Oropharyngeal pain [Unknown]
  - Nausea [Unknown]

NARRATIVE: CASE EVENT DATE: 20161117
